FAERS Safety Report 4441341-1 (Version None)
Quarter: 2004Q3

REPORT INFORMATION
  Report Type: 
  Country: None (occurrence: None)
  Receive Date: 20040728
  Receipt Date: 20040311
  Transmission Date: 20050211
  Serious: No
  Sender: FDA-Public Use
  Company Number: USA040361809

PATIENT
  Age: 9 Year
  Sex: Female
  Weight: 37 kg

DRUGS (1)
  1. STRATTERA [Suspect]
     Indication: ATTENTION DEFICIT/HYPERACTIVITY DISORDER
     Dosage: 60 MG DAY
     Dates: start: 20040220

REACTIONS (6)
  - AGGRESSION [None]
  - DISTURBANCE IN ATTENTION [None]
  - DRUG EFFECT DECREASED [None]
  - HUNGER [None]
  - PRESCRIBED OVERDOSE [None]
  - WEIGHT INCREASED [None]
